FAERS Safety Report 5297550-5 (Version None)
Quarter: 2007Q2

REPORT INFORMATION
  Report Type: 
  Country: None (occurrence: None)
  Receive Date: 20070416
  Receipt Date: 20070402
  Transmission Date: 20071010
  Serious: Yes (Hospitalization)
  Sender: FDA-Public Use
  Company Number: PHEH2007US03906

PATIENT
  Age: 42 Year
  Sex: Female

DRUGS (7)
  1. ATENOLOL [Concomitant]
     Dosage: UNK, UNK
  2. NEXIUM [Concomitant]
     Dosage: UNK, UNK
  3. ZANAFLEX [Concomitant]
     Dosage: UNK, UNK
  4. SKELAXIN [Concomitant]
     Dosage: UNK, UNK
  5. ULTRAM [Concomitant]
     Dosage: UNK, UNK
  6. XANAX [Concomitant]
     Dosage: UNK, UNK
  7. ZELNORM [Suspect]
     Indication: IRRITABLE BOWEL SYNDROME
     Dosage: 6 MG, QD
     Dates: start: 20050101, end: 20070401

REACTIONS (6)
  - CHEST PAIN [None]
  - DIZZINESS [None]
  - HYPERTENSION [None]
  - HYPOKALAEMIA [None]
  - HYPOTENSION [None]
  - NAUSEA [None]
